FAERS Safety Report 8437179-0 (Version None)
Quarter: 2012Q2

REPORT INFORMATION
  Report Type: 
  Country: None (occurrence: None)
  Receive Date: 20120614
  Receipt Date: 20120425
  Transmission Date: 20120825
  Serious: No
  Sender: FDA-Public Use
  Company Number: US-AMGEN-USASP2012020819

PATIENT
  Age: 63 Year
  Sex: Female
  Weight: 102.49 kg

DRUGS (26)
  1. PROLIA [Suspect]
     Indication: OSTEOPOROSIS POSTMENOPAUSAL
     Dosage: 60 MG, Q6MO
     Route: 058
     Dates: start: 20100916
  2. VITAMIN D [Concomitant]
     Dosage: UNK
  3. LASIX [Concomitant]
     Dosage: UNK
  4. CITRACAL + D [Concomitant]
     Dosage: UNK
  5. PROLIA [Suspect]
     Dosage: 60 MG, Q6MO
     Route: 058
     Dates: start: 20111229
  6. ZYRTEC [Concomitant]
     Dosage: UNK
  7. NIACIN [Concomitant]
     Dosage: UNK
  8. ASPIRIN [Concomitant]
     Dosage: UNK
  9. LEUCOVORIN CALCIUM [Concomitant]
     Dosage: UNK
  10. VITAMIN B-12 [Concomitant]
     Dosage: UNK
  11. PROLIA [Suspect]
     Dosage: 60 MG, Q6MO
     Route: 058
     Dates: start: 20110316
  12. ALLOPURINOL [Concomitant]
     Dosage: UNK
  13. COENZYME Q10 [Concomitant]
     Dosage: UNK
  14. GABAPENTIN [Concomitant]
     Dosage: UNK
  15. OMEPRAZOLE [Concomitant]
     Dosage: UNK
  16. PROZAC [Concomitant]
     Dosage: UNK
  17. CINNAMON [Concomitant]
  18. FLINTSTONES MULTIPLE VITAMINS [Concomitant]
     Dosage: UNK
  19. REFRESH EYE ITCH RELIEF [Concomitant]
     Dosage: UNK
  20. METOPROLOL TARTRATE [Concomitant]
     Dosage: UNK
  21. IRON [Concomitant]
     Dosage: UNK
  22. SEROQUEL XR [Concomitant]
     Dosage: UNK
  23. TOPAMAX [Suspect]
     Indication: BIPOLAR DISORDER
     Dosage: 150 MG, QHS
     Route: 048
  24. QUINAPRIL [Concomitant]
     Dosage: UNK
  25. BUSPIRONE HCL [Concomitant]
     Dosage: UNK
  26. NAPHCON [Concomitant]
     Dosage: UNK

REACTIONS (10)
  - DRY MOUTH [None]
  - ARTHRITIS [None]
  - DRY EYE [None]
  - IMPAIRED HEALING [None]
  - OVERDOSE [None]
  - PERIODONTAL DISEASE [None]
  - ANKLE FRACTURE [None]
  - DENTAL CARIES [None]
  - TOOTHACHE [None]
  - FALL [None]
